FAERS Safety Report 8800820 (Version 1)
Quarter: 2012Q4

REPORT INFORMATION
  Report Type: 
  Country: US (occurrence: US)
  Receive Date: 20120921
  Receipt Date: 20120921
  Transmission Date: 20130627
  Serious: Yes (Other)
  Sender: FDA-Public Use
  Company Number: US-PFIZER INC-2012233796

PATIENT
  Age: 60 Year
  Sex: Female
  Weight: 71.7 kg

DRUGS (3)
  1. ZOLOFT [Suspect]
     Indication: DEPRESSION
     Dosage: 200 mg, daily
     Dates: start: 1995
  2. ZYPREXA [Concomitant]
     Indication: ADJUVANT THERAPY
     Dosage: 5 mg, daily
  3. CLONAZEPAM [Concomitant]
     Indication: ANXIETY
     Dosage: 2mg as needed (1 to 4 tablets daily)
     Route: 048

REACTIONS (4)
  - Lymphadenopathy [Not Recovered/Not Resolved]
  - Pain [Not Recovered/Not Resolved]
  - Respiratory tract congestion [Not Recovered/Not Resolved]
  - Stress [Not Recovered/Not Resolved]
